FAERS Safety Report 4321905-6 (Version None)
Quarter: 2004Q1

REPORT INFORMATION
  Report Type: 
  Country: None (occurrence: None)
  Receive Date: 20040317
  Receipt Date: 20040305
  Transmission Date: 20041129
  Serious: Yes (Other)
  Sender: FDA-Public Use
  Company Number: 2004-00955

PATIENT
  Sex: Male

DRUGS (1)
  1. IMMUCYST(BCG - IT (CONNAUGHT)), AVENTIS PASTEUR LTD., LOT NOR REP, II [Suspect]
     Indication: BLADDER CANCER
     Dosage: 81 MG (81.0 MG) B. IN., BLADDER
     Dates: start: 20040216, end: 20040223

REACTIONS (5)
  - BLOOD CREATININE INCREASED [None]
  - DYSURIA [None]
  - POLLAKIURIA [None]
  - RENAL DISORDER [None]
  - URINARY RETENTION [None]
